FAERS Safety Report 4701522-6 (Version None)
Quarter: 2005Q2

REPORT INFORMATION
  Report Type: 
  Country: None (occurrence: None)
  Receive Date: 20050628
  Receipt Date: 20050620
  Transmission Date: 20051028
  Serious: Yes (Hospitalization)
  Sender: FDA-Public Use
  Company Number: CA-BRISTOL-MYERS SQUIBB COMPANY-13010889

PATIENT
  Age: 37 Year
  Sex: Male

DRUGS (12)
  1. TRAZODONE HCL [Suspect]
  2. CITALOPRAM [Suspect]
  3. LINEZOLID [Suspect]
     Route: 048
  4. HYDROMORPHONE HCL [Concomitant]
     Indication: PAIN
     Dosage: DURATION OF THERAPY: 3 WEEKS
     Route: 058
  5. OLANZAPINE [Concomitant]
  6. CLONAZEPAM [Concomitant]
  7. PANTOPRAZOLE [Concomitant]
  8. METFORMIN HCL [Concomitant]
  9. PERINDOPRIL [Concomitant]
  10. FUROSEMIDE [Concomitant]
  11. SENNA [Concomitant]
  12. DOCUSATE SODIUM [Concomitant]

REACTIONS (1)
  - SEROTONIN SYNDROME [None]
